FAERS Safety Report 7973590-X (Version None)
Quarter: 2011Q4

REPORT INFORMATION
  Report Type: 
  Country: None (occurrence: None)
  Receive Date: 20111209
  Receipt Date: 20111129
  Transmission Date: 20120403
  Serious: Yes (Life-Threatening, Hospitalization)
  Sender: FDA-Public Use
  Company Number: TCI2011A06358

PATIENT
  Age: 79 Year
  Sex: Female

DRUGS (9)
  1. ONEALFA (ALFACALCIDOL) [Concomitant]
  2. LENDORM [Concomitant]
  3. NORVASC [Concomitant]
  4. DOXAZOSIN MESYLATE [Concomitant]
  5. BLOPRESS (CANDESARTAN CILEXETIL) [Concomitant]
  6. BASEN (VOGLIBOSE) [Concomitant]
  7. SUNRYTHM (PILSICAINIDE HYDROCHLORIDE) [Concomitant]
  8. ACTOS [Suspect]
     Indication: DIABETES MELLITUS
     Dosage: 15 MG (15 MG,1 D) PER ORAL
     Route: 048
     Dates: start: 20050314, end: 20090810
  9. FAMOTIDINE [Concomitant]

REACTIONS (2)
  - HYDRONEPHROSIS [None]
  - TRANSITIONAL CELL CANCER OF THE RENAL PELVIS AND URETER [None]
